FAERS Safety Report 11770816 (Version 1)
Quarter: 2015Q4

REPORT INFORMATION
  Report Type: Spontaneous
  Country: IT (occurrence: IT)
  Receive Date: 20151123
  Receipt Date: 20151123
  Transmission Date: 20160304
  Serious: Yes (Other)
  Sender: FDA-Public Use
  Company Number: PHHY2015IT151076

PATIENT
  Sex: Male
  Weight: 2.75 kg

DRUGS (5)
  1. CICLOSPORIN [Suspect]
     Active Substance: CYCLOSPORINE
     Dosage: MATERNAL DOSE:1.5 MG/KG, QD
     Route: 064
  2. BASILIXIMAB [Suspect]
     Active Substance: BASILIXIMAB
     Indication: FOETAL EXPOSURE DURING PREGNANCY
     Route: 064
  3. EVEROLIMUS [Suspect]
     Active Substance: EVEROLIMUS
     Dosage: MATERNAL DOSE:2 MG, QD
     Route: 064
  4. CICLOSPORIN [Suspect]
     Active Substance: CYCLOSPORINE
     Indication: FOETAL EXPOSURE DURING PREGNANCY
     Dosage: MATERNAL DOSE:1.4 MG/KG, QD
     Route: 064
  5. EVEROLIMUS [Suspect]
     Active Substance: EVEROLIMUS
     Indication: FOETAL EXPOSURE DURING PREGNANCY
     Dosage: MATERNAL DOSE: 1 MG, QD
     Route: 064

REACTIONS (2)
  - Premature baby [Unknown]
  - Foetal exposure during pregnancy [Unknown]
